FAERS Safety Report 10850190 (Version 1)
Quarter: 2015Q1

REPORT INFORMATION
  Report Type: Spontaneous
  Country: US (occurrence: US)
  Receive Date: 20150221
  Receipt Date: 20150221
  Transmission Date: 20150721
  Serious: No
  Sender: FDA-Public Use
  Company Number: US-NOVEN-14US010768

PATIENT
  Age: 51 Year
  Sex: Female

DRUGS (4)
  1. MINIVELLE [Suspect]
     Active Substance: ESTRADIOL
     Indication: HOT FLUSH
     Dosage: 0.075MG, UNK
     Route: 062
     Dates: start: 201409
  2. MINIVELLE [Suspect]
     Active Substance: ESTRADIOL
     Dosage: 0.05 MG, UNK
     Dates: start: 201302, end: 201409
  3. MINIVELLE [Suspect]
     Active Substance: ESTRADIOL
     Dosage: 1 AND 1/4 X .075MG/DAY
     Dates: start: 201409
  4. MINIVELLE [Suspect]
     Active Substance: ESTRADIOL
     Dosage: 1 AND 1/8 X 0.075MG/DAY
     Dates: start: 201409

REACTIONS (8)
  - Headache [Not Recovered/Not Resolved]
  - Arthralgia [Recovered/Resolved]
  - Anxiety [Recovered/Resolved]
  - Drug prescribing error [Recovered/Resolved]
  - Depressed mood [Recovered/Resolved]
  - Wrong technique in drug usage process [Recovered/Resolved]
  - Off label use [Not Recovered/Not Resolved]
  - Hot flush [Recovered/Resolved]

NARRATIVE: CASE EVENT DATE: 201409
